FAERS Safety Report 10169736 (Version 1)
Quarter: 2014Q2

REPORT INFORMATION
  Report Type: Spontaneous
  Country: SG (occurrence: SG)
  Receive Date: 20140513
  Receipt Date: 20140513
  Transmission Date: 20141212
  Serious: Yes (Other)
  Sender: FDA-Public Use
  Company Number: SG-BAYER-2014-065106

PATIENT
  Age: 74 Year
  Sex: Male

DRUGS (2)
  1. CIPROFLOXACIN [Suspect]
  2. ALLOPURINOL [Suspect]

REACTIONS (3)
  - Generalised erythema [Unknown]
  - Eye disorder [Unknown]
  - Odynophagia [Unknown]
